FAERS Safety Report 9737743 (Version 2)
Quarter: 2013Q4

REPORT INFORMATION
  Report Type: Spontaneous
  Country: US (occurrence: US)
  Receive Date: 20131208
  Receipt Date: 20131208
  Transmission Date: 20140711
  Serious: No
  Sender: FDA-Public Use
  Company Number: -SAAVPROD-RENA-1001029

PATIENT
  Age: 41 Year
  Sex: Female

DRUGS (8)
  1. SEVELAMER HYDROCHLORIDE [Suspect]
     Indication: HYPERPHOSPHATAEMIA
     Dosage: (2-3 TABLETS WITH FOOD)  2X DAY
     Route: 048
     Dates: start: 20061204, end: 20101108
  2. SEVELAMER HYDROCHLORIDE [Suspect]
     Indication: HYPERPHOSPHATAEMIA
     Dosage: (2-3 TABLETS WITH FOOD)  2X DAY
     Route: 048
     Dates: start: 20061204, end: 20101108
  3. SEVELAMER CARBONATE [Suspect]
     Indication: HYPERPHOSPHATAEMIA
     Dosage: UNK, (2-3 TABLETS WITH MEALS) (1-2 X DAY)
     Route: 048
     Dates: start: 20101108, end: 20101110
  4. SEVELAMER CARBONATE [Suspect]
     Indication: HYPERPHOSPHATAEMIA
     Dosage: UNK, (2-3 TABLETS WITH MEALS) (1-2 X DAY)
     Route: 048
     Dates: start: 20101108, end: 20101110
  5. SEVELAMER CARBONATE [Suspect]
     Indication: HYPERPHOSPHATAEMIA
     Dosage: 2.4 G PACKET, TID (WHEN PREPARING SOME FOOD, SPRINKLING THE POWDER ON IT)
     Route: 048
     Dates: start: 20101110
  6. SEVELAMER CARBONATE [Suspect]
     Indication: HYPERPHOSPHATAEMIA
     Dosage: 2.4 G PACKET, TID (WHEN PREPARING SOME FOOD, SPRINKLING THE POWDER ON IT)
     Route: 048
     Dates: start: 20101110
  7. RENAL VITAMIN [Concomitant]
     Indication: PRODUCT USED FOR UNKNOWN INDICATION
     Dosage: UNK
     Route: 065
  8. RENAL VITAMIN [Concomitant]
     Indication: PRODUCT USED FOR UNKNOWN INDICATION
     Dosage: UNK
     Route: 065

REACTIONS (1)
  - Hyperphosphataemia [Unknown]
